FAERS Safety Report 19579812 (Version 1)
Quarter: 2021Q3

REPORT INFORMATION
  Report Type: Spontaneous
  Country: US (occurrence: US)
  Receive Date: 20210719
  Receipt Date: 20210719
  Transmission Date: 20211014
  Serious: No
  Sender: FDA-Public Use
  Company Number: US-NOVOPROD-782125

PATIENT
  Age: 48 Year
  Sex: Male

DRUGS (1)
  1. OZEMPIC [Suspect]
     Active Substance: SEMAGLUTIDE
     Indication: DIABETES MELLITUS
     Dosage: 1 MG, QW (SUNDAYS)
     Route: 058
     Dates: start: 20200801

REACTIONS (5)
  - Gastrointestinal sounds abnormal [Unknown]
  - Abdominal discomfort [Unknown]
  - Diarrhoea [Unknown]
  - Eructation [Unknown]
  - Product quality issue [Unknown]

NARRATIVE: CASE EVENT DATE: 20210111
